FAERS Safety Report 11841433 (Version 2)
Quarter: 2016Q1

REPORT INFORMATION
  Report Type: Spontaneous
  Country: AU (occurrence: AU)
  Receive Date: 20151216
  Receipt Date: 20160311
  Transmission Date: 20160526
  Serious: Yes (Congenital Anomaly, Other)
  Sender: FDA-Public Use
  Company Number: AU-PFIZER INC-2015445085

PATIENT
  Sex: Female
  Weight: .18 kg

DRUGS (3)
  1. DOSTINEX [Suspect]
     Active Substance: CABERGOLINE
     Indication: PITUITARY TUMOUR
     Dosage: 0.5 MG, 3X/WEEK
     Route: 064
     Dates: start: 2013, end: 201511
  2. OROXINE [Concomitant]
     Active Substance: LEVOTHYROXINE SODIUM
     Indication: SECONDARY HYPOTHYROIDISM
     Dosage: 75 UG, UNK
     Route: 064
     Dates: start: 2014
  3. DOSTINEX [Suspect]
     Active Substance: CABERGOLINE
     Indication: PROLACTINOMA
     Dosage: 0.5 MG, 2X/WEEK
     Route: 064

REACTIONS (4)
  - Deafness [Unknown]
  - Premature baby [Unknown]
  - Poor sucking reflex [Unknown]
  - Maternal exposure during pregnancy [Unknown]
